FAERS Safety Report 25384701 (Version 2)
Quarter: 2025Q2

REPORT INFORMATION
  Report Type: Spontaneous
  Country: JP (occurrence: JP)
  Receive Date: 20250602
  Receipt Date: 20250618
  Transmission Date: 20250716
  Serious: Yes (Other)
  Sender: PHARMACOSMOS A/S
  Company Number: JP-NEBO-696975

PATIENT
  Age: 49 Year
  Sex: Female

DRUGS (1)
  1. FERRIC DERISOMALTOSE [Suspect]
     Active Substance: FERRIC DERISOMALTOSE
     Indication: Iron deficiency anaemia
     Dates: start: 20230821, end: 20240717

REACTIONS (4)
  - Serum ferritin increased [Unknown]
  - Product use issue [Recovered/Resolved]
  - Hypophosphataemic osteomalacia [Recovering/Resolving]
  - Overdose [Unknown]

NARRATIVE: CASE EVENT DATE: 20240701
